FAERS Safety Report 10380871 (Version 1)
Quarter: 2014Q3

REPORT INFORMATION
  Report Type: Spontaneous
  Country: US (occurrence: None)
  Receive Date: 20140808
  Receipt Date: 20140808
  Transmission Date: 20150326
  Serious: Yes (Other)
  Sender: FDA-Public Use
  Company Number: 2010S1000548

PATIENT
  Age: 67 Year
  Sex: Male

DRUGS (6)
  1. LIPITOR [Concomitant]
     Active Substance: ATORVASTATIN CALCIUM
  2. CARDURA [Concomitant]
     Active Substance: DOXAZOSIN MESYLATE
  3. AMITIZA [Suspect]
     Active Substance: LUBIPROSTONE
     Indication: COLONOSCOPY
  4. PHOSPHO-SODA [Suspect]
     Active Substance: SODIUM PHOSPHATE, DIBASIC\SODIUM PHOSPHATE, MONOBASIC
     Indication: COLONOSCOPY
     Route: 048
     Dates: start: 20050125, end: 20050125
  5. FLEET [Suspect]
     Active Substance: BISACODYL\GLYCERIN\MINERAL OIL\SODIUM PHOSPHATE, DIBASIC\SODIUM PHOSPHATE, MONOBASIC
     Indication: COLONOSCOPY
     Route: 054
  6. COZAAR [Concomitant]
     Active Substance: LOSARTAN POTASSIUM

REACTIONS (13)
  - Insomnia [None]
  - Cough [None]
  - Renal tubular necrosis [None]
  - Benign prostatic hyperplasia [None]
  - Hypertension [None]
  - Hyperlipidaemia [None]
  - Renal failure chronic [None]
  - Haematuria [None]
  - Blood parathyroid hormone increased [None]
  - Peripheral swelling [None]
  - Nephrosclerosis [None]
  - Amnesia [None]
  - Anaemia [None]
